FAERS Safety Report 5763499-4 (Version None)
Quarter: 2008Q2

REPORT INFORMATION
  Report Type: 
  Country: None (occurrence: None)
  Receive Date: 20080604
  Receipt Date: 20080604
  Transmission Date: 20081010
  Serious: No
  Sender: FDA-Public Use
  Company Number: None

PATIENT
  Sex: Male
  Weight: 82 kg

DRUGS (5)
  1. FLUOROURACIL [Suspect]
     Dosage: 2497 MG
  2. ERBITUX [Suspect]
     Dosage: 530 MG
  3. LEUCOVORIN CALCIUM [Suspect]
     Dosage: 850 MG
  4. ELOXATIN [Suspect]
     Dosage: 57 MG
  5. LOVENOX [Concomitant]

REACTIONS (3)
  - DYSPHAGIA [None]
  - EMBOLISM [None]
  - PULMONARY EMBOLISM [None]
